FAERS Safety Report 7687303-2 (Version None)
Quarter: 2011Q3

REPORT INFORMATION
  Report Type: 
  Country: None (occurrence: None)
  Receive Date: 20110816
  Receipt Date: 20110803
  Transmission Date: 20111222
  Serious: Yes (Other)
  Sender: FDA-Public Use
  Company Number: IT-MYLANLABS-2011S1016180

PATIENT
  Age: 6 Year
  Sex: Female

DRUGS (5)
  1. AMLODIPINE BESYLATE [Suspect]
     Indication: PNEUMONIA MYCOPLASMAL
     Dosage: 7.5 MG/KG/DAY IN TWO DOSES
     Route: 042
  2. DUOCID                             /00892601/ [Concomitant]
     Indication: PNEUMONIA MYCOPLASMAL
     Dosage: 150 MG/KG/DAY IN THREE DOSES
     Route: 042
  3. MEROPENEM [Concomitant]
     Indication: PNEUMONIA MYCOPLASMAL
     Dosage: 100 MG/KG/DAY IN THREE DOSES
     Route: 042
  4. ALBUTEROL [Concomitant]
     Indication: PNEUMONIA MYCOPLASMAL
     Route: 055
  5. TEICOPLANIN [Concomitant]
     Indication: PNEUMONIA MYCOPLASMAL
     Dosage: 10 MG/KG/DAY OD
     Route: 042

REACTIONS (1)
  - PATHOGEN RESISTANCE [None]
